FAERS Safety Report 9011419 (Version 1)
Quarter: 2013Q1

REPORT INFORMATION
  Report Type: Spontaneous
  Country: US (occurrence: US)
  Receive Date: 20130108
  Receipt Date: 20130108
  Transmission Date: 20140127
  Serious: Yes (Other)
  Sender: FDA-Public Use
  Company Number: US-BAYER-2013-001397

PATIENT
  Sex: Male
  Weight: 104.31 kg

DRUGS (5)
  1. BETASERON [Suspect]
     Dosage: 0.25 MG, QOD
     Route: 058
  2. IBUPROFEN [Concomitant]
     Dosage: 200 MG, UNK
  3. ADVAIR [Concomitant]
  4. ALBUTEROL [Concomitant]
  5. ZINC [Concomitant]
     Dosage: 30 MG, UNK

REACTIONS (3)
  - Retinal detachment [Unknown]
  - Injection site pain [Unknown]
  - Injection site bruising [Unknown]
